FAERS Safety Report 7983210-6 (Version None)
Quarter: 2011Q4

REPORT INFORMATION
  Report Type: 
  Country: None (occurrence: None)
  Receive Date: 20111215
  Receipt Date: 20111208
  Transmission Date: 20120403
  Serious: Yes (Hospitalization)
  Sender: FDA-Public Use
  Company Number: US-GLAXOSMITHKLINE-A0957115A

PATIENT
  Sex: Male

DRUGS (3)
  1. ARZERRA [Suspect]
     Indication: PRODUCT USED FOR UNKNOWN INDICATION
     Route: 042
     Dates: start: 20111123
  2. ANTIHISTAMINE [Concomitant]
  3. ACETAMINOPHEN [Concomitant]

REACTIONS (6)
  - ABDOMINAL DISCOMFORT [None]
  - WHITE BLOOD CELL COUNT INCREASED [None]
  - LOCAL SWELLING [None]
  - TREMOR [None]
  - CHILLS [None]
  - NASOPHARYNGITIS [None]
